FAERS Safety Report 9531995 (Version 1)
Quarter: 2013Q3

REPORT INFORMATION
  Report Type: Spontaneous
  Country: US (occurrence: None)
  Receive Date: 20130917
  Receipt Date: 20130917
  Transmission Date: 20140515
  Serious: Yes (Hospitalization)
  Sender: FDA-Public Use
  Company Number: None

PATIENT
  Age: 3 Year
  Sex: Female

DRUGS (4)
  1. RETROVIR [Suspect]
     Indication: HIV INFECTION
     Route: 048
     Dates: start: 2010
  2. KALETRA [Suspect]
     Route: 048
  3. EPIVIR [Suspect]
     Route: 048
  4. MULTIVITAMIN [Concomitant]

REACTIONS (1)
  - Pneumonia [None]
